FAERS Safety Report 6406035-1 (Version None)
Quarter: 2009Q4

REPORT INFORMATION
  Report Type: 
  Country: None (occurrence: None)
  Receive Date: 20091019
  Receipt Date: 20091015
  Transmission Date: 20100525
  Serious: Yes (Hospitalization)
  Sender: FDA-Public Use
  Company Number: JP-BRISTOL-MYERS SQUIBB COMPANY-14760805

PATIENT
  Age: 36 Year
  Weight: 44 kg

DRUGS (1)
  1. BRIPLATIN [Suspect]
     Indication: CERVIX CARCINOMA
     Route: 042
     Dates: start: 20090818, end: 20090818

REACTIONS (1)
  - ILEUS [None]
